FAERS Safety Report 9845076 (Version 1)
Quarter: 2014Q1

REPORT INFORMATION
  Report Type: Spontaneous
  Country: IT (occurrence: IT)
  Receive Date: 20140127
  Receipt Date: 20140127
  Transmission Date: 20141002
  Serious: Yes (Hospitalization)
  Sender: FDA-Public Use
  Company Number: IT-MYLANLABS-2014S1001152

PATIENT
  Age: 77 Year
  Sex: Male
  Weight: 75 kg

DRUGS (8)
  1. ATORVASTATIN [Suspect]
     Indication: HYPERCHOLESTEROLAEMIA
     Dosage: 80 MG DAILY
     Route: 048
  2. FLUOXETINE [Interacting]
     Indication: DEPRESSION
     Dosage: 20 MG DAILY
     Route: 048
  3. FLANTADIN [Interacting]
     Indication: ARTHRALGIA
     Dosage: 30 MG DAILY
     Route: 048
     Dates: start: 20131210, end: 20131218
  4. CYCLOBENZAPRINE HYDROCHLORIDE [Interacting]
     Indication: DEPRESSION
     Dosage: 15 MG DAILY
     Route: 048
  5. ACETYLSALICYLIC ACID [Concomitant]
     Indication: MYOCARDIAL ISCHAEMIA
     Dosage: 325 MG
     Route: 048
  6. OLMESARTAN MEDOXOMIL [Concomitant]
     Indication: ESSENTIAL HYPERTENSION
     Dosage: 20 MG
     Route: 048
  7. ATENOLOL [Concomitant]
     Indication: ESSENTIAL HYPERTENSION
     Dosage: 50 MG
     Route: 048
  8. CILOSTAZOL [Concomitant]
     Indication: PRODUCT USED FOR UNKNOWN INDICATION
     Dosage: 200 MG
     Route: 048

REACTIONS (6)
  - Drug interaction [Recovering/Resolving]
  - Rhabdomyolysis [Recovering/Resolving]
  - Renal failure acute [Recovering/Resolving]
  - Chorea [Recovering/Resolving]
  - Transaminases increased [Recovering/Resolving]
  - Blood glucose increased [Recovering/Resolving]
